FAERS Safety Report 19575418 (Version 1)
Quarter: 2021Q3

REPORT INFORMATION
  Report Type: Spontaneous
  Country: US (occurrence: US)
  Receive Date: 20210716
  Receipt Date: 20210716
  Transmission Date: 20211014
  Serious: No
  Sender: FDA-Public Use
  Company Number: None

PATIENT
  Age: 26 Year
  Sex: Female
  Weight: 77 kg

DRUGS (2)
  1. JUNEL FE 1/20 [Concomitant]
     Active Substance: ETHINYL ESTRADIOL\NORETHINDRONE ACETATE
  2. NEUTROGENA ULTRA SHEER BODY MIST SUNSCRN BR^D SPECT SPF 30 (AVOB\HOMO\OCTI\OCTO) [Suspect]
     Active Substance: AVOBENZONE\HOMOSALATE\OCTISALATE\OCTOCRYLENE
     Indication: PROPHYLAXIS AGAINST SOLAR RADIATION
     Route: 061
     Dates: start: 20210715, end: 20210716

REACTIONS (3)
  - Application site erythema [None]
  - Application site pruritus [None]
  - Urticaria [None]

NARRATIVE: CASE EVENT DATE: 20210716
